FAERS Safety Report 7383163-8 (Version None)
Quarter: 2011Q1

REPORT INFORMATION
  Report Type: 
  Country: None (occurrence: None)
  Receive Date: 20110330
  Receipt Date: 20110322
  Transmission Date: 20110831
  Serious: Yes (Other)
  Sender: FDA-Public Use
  Company Number: DE-SANOFI-AVENTIS-2011SA002196

PATIENT
  Sex: Female

DRUGS (1)
  1. CLEXANE [Suspect]
     Indication: THROMBOPHLEBITIS
     Route: 058
     Dates: start: 20110106, end: 20110109

REACTIONS (5)
  - VIITH NERVE PARALYSIS [None]
  - HYPERACUSIS [None]
  - DYSGEUSIA [None]
  - SENSORY DISTURBANCE [None]
  - HEADACHE [None]
